FAERS Safety Report 5669315-3 (Version None)
Quarter: 2008Q1

REPORT INFORMATION
  Report Type: 
  Country: None (occurrence: None)
  Receive Date: 20080317
  Receipt Date: 20080311
  Transmission Date: 20080703
  Serious: Yes (Other)
  Sender: FDA-Public Use
  Company Number: US-AVENTIS-200811577US

PATIENT
  Age: 56 Year
  Sex: Male

DRUGS (8)
  1. LANTUS [Suspect]
     Dosage: DOSE QUANTITY: 45
     Route: 058
  2. METFORMIN HYDROCHLORIDE [Suspect]
     Dates: start: 20060301
  3. PLAVIX [Suspect]
     Indication: ACUTE CORONARY SYNDROME
     Route: 048
     Dates: start: 20060301, end: 20080221
  4. PLAVIX [Suspect]
     Route: 048
     Dates: start: 20060301, end: 20080221
  5. ZETIA [Suspect]
  6. CRESTOR [Suspect]
  7. COZAAR [Suspect]
  8. BYETTA [Concomitant]
     Indication: PREMEDICATION

REACTIONS (2)
  - NEPHRITIS ALLERGIC [None]
  - PROTEIN URINE PRESENT [None]
